FAERS Safety Report 8287231-8 (Version None)
Quarter: 2012Q2

REPORT INFORMATION
  Report Type: 
  Country: None (occurrence: None)
  Receive Date: 20120416
  Receipt Date: 20120402
  Transmission Date: 20120825
  Serious: Yes (Other)
  Sender: FDA-Public Use
  Company Number: DE-RANBAXY-2012RR-55363

PATIENT
  Age: 48 Year
  Sex: Female

DRUGS (3)
  1. HALOPERIDOL [Concomitant]
     Indication: SCHIZOPHRENIA, CATATONIC TYPE
     Dosage: UNK
     Route: 065
  2. OLANZAPINE [Interacting]
     Indication: PRODUCT USED FOR UNKNOWN INDICATION
     Dosage: 10 MG
     Route: 065
  3. LORAZEPAM [Suspect]
     Indication: PRODUCT USED FOR UNKNOWN INDICATION
     Dosage: 3-4.5 MG/DAY IN 3 DIVIDED DOSES
     Route: 048

REACTIONS (2)
  - DRUG INTERACTION [None]
  - HYPOTHERMIA [None]
